FAERS Safety Report 7768809-4 (Version None)
Quarter: 2011Q3

REPORT INFORMATION
  Report Type: 
  Country: None (occurrence: None)
  Receive Date: 20110920
  Receipt Date: 20110907
  Transmission Date: 20111222
  Serious: Yes (Hospitalization, Other)
  Sender: FDA-Public Use
  Company Number: 2011MA003611

PATIENT
  Age: 56 Year
  Sex: Female
  Weight: 108.8633 kg

DRUGS (28)
  1. ZOLOFT [Concomitant]
  2. WELCHOL [Concomitant]
  3. CLONAZEPAM [Concomitant]
  4. AVELOX [Concomitant]
  5. ADVAIR DISKUS 100/50 [Concomitant]
  6. FLOVENT [Concomitant]
  7. CUTIVATE [Concomitant]
  8. PENICILLIN K [Concomitant]
  9. MUPIROCIN OINTMENT [Concomitant]
  10. METOCLOPRAMIDE [Suspect]
     Indication: GASTROOESOPHAGEAL REFLUX DISEASE
     Dosage: 10 MG; HS;
     Dates: start: 19970101, end: 20091201
  11. METOCLOPRAMIDE [Suspect]
     Indication: DYSKINESIA OESOPHAGEAL
     Dosage: 10 MG; HS;
     Dates: start: 19970101, end: 20091201
  12. HYOMAX [Concomitant]
  13. ABILIFY [Concomitant]
  14. DOXYCYCLINE [Concomitant]
  15. PREVACID [Concomitant]
  16. LAMICTAL [Concomitant]
  17. WELLBUTRIN [Concomitant]
  18. NORVASC [Concomitant]
  19. PALGIC [Concomitant]
  20. NEXIUM [Concomitant]
  21. LAMISIL [Concomitant]
  22. CLOBETASOL PROPIONATE [Concomitant]
  23. SPIRIVA [Concomitant]
  24. LEVSIN [Concomitant]
  25. ZOLPIDEM [Concomitant]
  26. LUNESTA [Concomitant]
  27. LEVAQUIN [Concomitant]
  28. SINGULAIR [Concomitant]

REACTIONS (26)
  - RADICULOPATHY [None]
  - HERNIA [None]
  - ANXIETY [None]
  - STOMATITIS [None]
  - PARAESTHESIA [None]
  - SCIATICA [None]
  - MUSCLE SPASMS [None]
  - CARPAL TUNNEL SYNDROME [None]
  - SLEEP APNOEA SYNDROME [None]
  - EMPHYSEMA [None]
  - DEPRESSION [None]
  - HYSTERECTOMY [None]
  - GALLBLADDER DISORDER [None]
  - OESOPHAGEAL DISORDER [None]
  - TARDIVE DYSKINESIA [None]
  - MUSCULOSKELETAL PAIN [None]
  - TONGUE SPASM [None]
  - DYSKINESIA [None]
  - IRRITABLE BOWEL SYNDROME [None]
  - DRY MOUTH [None]
  - OSTEOARTHRITIS [None]
  - GASTROOESOPHAGEAL REFLUX DISEASE [None]
  - BACK PAIN [None]
  - TRIGGER FINGER [None]
  - SPINAL OSTEOARTHRITIS [None]
  - DYSPHAGIA [None]
